FAERS Safety Report 15982919 (Version 1)
Quarter: 2019Q1

REPORT INFORMATION
  Report Type: Spontaneous
  Country: US (occurrence: US)
  Receive Date: 20190219
  Receipt Date: 20190219
  Transmission Date: 20190418
  Serious: Yes (Hospitalization, Other)
  Sender: FDA-Public Use
  Company Number: US-C B FLEET CO INC-201902-US-000355

PATIENT
  Sex: Female

DRUGS (1)
  1. BC ARTHRITIS [Suspect]
     Active Substance: ASPIRIN\CAFFEINE
     Indication: PAIN
     Route: 048

REACTIONS (8)
  - Gastrooesophageal reflux disease [Not Recovered/Not Resolved]
  - Gastrointestinal haemorrhage [Not Recovered/Not Resolved]
  - Iron deficiency anaemia [Recovered/Resolved]
  - Alopecia [Not Recovered/Not Resolved]
  - Blood viscosity decreased [Recovered/Resolved]
  - Incorrect product administration duration [None]
  - Abdominal pain upper [Not Recovered/Not Resolved]
  - Colitis ulcerative [Recovered/Resolved]
